FAERS Safety Report 7672477-X (Version None)
Quarter: 2011Q3

REPORT INFORMATION
  Report Type: 
  Country: None (occurrence: None)
  Receive Date: 20110809
  Receipt Date: 20110802
  Transmission Date: 20111222
  Serious: Yes (Hospitalization, Other)
  Sender: FDA-Public Use
  Company Number: JP-PFIZER INC-2011166091

PATIENT
  Age: 86 Year
  Sex: Male
  Weight: 48 kg

DRUGS (11)
  1. RIFAMPICIN [Suspect]
     Dosage: 25 MG, UNK
  2. ISONIAZID [Concomitant]
     Dosage: 25 MG, UNK
  3. ISONIAZID [Concomitant]
     Dosage: 250 MG, UNK
  4. ETHAMBUTOL [Concomitant]
     Dosage: 750 MG, UNK
  5. ISONIAZID [Concomitant]
     Indication: PULMONARY TUBERCULOSIS
     Dosage: 250 MG, UNK
     Dates: start: 20091201
  6. ETHAMBUTOL [Concomitant]
     Indication: PULMONARY TUBERCULOSIS
     Dosage: UNK
     Dates: start: 20091201
  7. ETHAMBUTOL [Concomitant]
     Dosage: 50 MG, UNK
  8. DILTIAZEM [Concomitant]
  9. ISOSORBIDE MONONITRATE [Concomitant]
  10. ZOPICLONE [Concomitant]
  11. RIFAMPICIN [Suspect]
     Indication: PULMONARY TUBERCULOSIS
     Dosage: UNK
     Dates: start: 20091201

REACTIONS (1)
  - PNEUMONITIS [None]
